FAERS Safety Report 21509678 (Version 2)
Quarter: 2022Q4

REPORT INFORMATION
  Report Type: Report from Study
  Country: US (occurrence: US)
  Receive Date: 20221026
  Receipt Date: 20221207
  Transmission Date: 20230113
  Serious: No
  Sender: FDA-Public Use
  Company Number: US-ABBVIE-4169276

PATIENT
  Sex: Male

DRUGS (1)
  1. IMBRUVICA [Suspect]
     Active Substance: IBRUTINIB
     Indication: B-cell lymphoma stage II
     Route: 048
     Dates: start: 20220309

REACTIONS (3)
  - Pruritus [Unknown]
  - Renal impairment [Unknown]
  - Gait disturbance [Unknown]
